FAERS Safety Report 13521983 (Version 1)
Quarter: 2017Q2

REPORT INFORMATION
  Report Type: Spontaneous
  Country: US (occurrence: US)
  Receive Date: 20170505
  Receipt Date: 20170505
  Transmission Date: 20170830
  Serious: No
  Sender: FDA-Public Use
  Company Number: None

PATIENT
  Sex: Female

DRUGS (1)
  1. HUMIRA [Suspect]
     Active Substance: ADALIMUMAB
     Indication: COLITIS ULCERATIVE
     Dosage: 40MG EVERY SUBCUTANEOUSLY
     Route: 058
     Dates: start: 20170209

REACTIONS (3)
  - Fungal infection [None]
  - Renal disorder [None]
  - Bacterial infection [None]
